FAERS Safety Report 9050387 (Version 1)
Quarter: 2013Q1

REPORT INFORMATION
  Report Type: Spontaneous
  Country: US (occurrence: US)
  Receive Date: 20130205
  Receipt Date: 20130205
  Transmission Date: 20140127
  Serious: No
  Sender: FDA-Public Use
  Company Number: US-ASTRAZENECA-2013SE07516

PATIENT
  Sex: Female

DRUGS (1)
  1. SEROQUEL XR [Suspect]
     Indication: MOOD SWINGS
     Route: 048
     Dates: start: 201212, end: 201301

REACTIONS (5)
  - Mood swings [Not Recovered/Not Resolved]
  - Feeling abnormal [Not Recovered/Not Resolved]
  - Anger [Not Recovered/Not Resolved]
  - Restlessness [Not Recovered/Not Resolved]
  - Intentional drug misuse [Not Recovered/Not Resolved]
